FAERS Safety Report 4832691-5 (Version None)
Quarter: 2005Q4

REPORT INFORMATION
  Report Type: 
  Country: None (occurrence: None)
  Receive Date: 20051121
  Receipt Date: 20051110
  Transmission Date: 20060501
  Serious: Yes (Hospitalization)
  Sender: FDA-Public Use
  Company Number: PHRM2005FR02954

PATIENT
  Age: 74 Year
  Sex: Male
  Weight: 58 kg

DRUGS (6)
  1. COTAREG [Suspect]
     Indication: HYPERTENSION
     Dosage: 1 DF, QD
     Route: 048
     Dates: end: 20050520
  2. CORDARONE [Suspect]
     Dosage: 200 MG, QD
     Route: 048
     Dates: end: 20050523
  3. PREVISCAN [Suspect]
     Dosage: 20 MG/15 MG ALTERNATELY 1DAY/2 DAYS
     Route: 048
     Dates: end: 20050522
  4. AMLOR [Suspect]
     Indication: HYPERTENSION
     Dosage: 10 MG, QD
     Route: 048
     Dates: end: 20050520
  5. HYPERIUM [Suspect]
     Dosage: 1 MG, QD
     Route: 048
     Dates: end: 20050520
  6. MIXTARD HUMAN 70/30 [Suspect]
     Route: 058
     Dates: end: 20050521

REACTIONS (6)
  - CREATININE RENAL CLEARANCE DECREASED [None]
  - DYSPNOEA [None]
  - GENERAL PHYSICAL HEALTH DETERIORATION [None]
  - HYPOGLYCAEMIA [None]
  - PULMONARY FIBROSIS [None]
  - RENAL FAILURE [None]
